FAERS Safety Report 24914297 (Version 1)
Quarter: 2025Q1

REPORT INFORMATION
  Report Type: Spontaneous
  Country: US (occurrence: US)
  Receive Date: 20250203
  Receipt Date: 20250203
  Transmission Date: 20250408
  Serious: No
  Sender: RANBAXY
  Company Number: US-SUN PHARMACEUTICAL INDUSTRIES LTD-2024R1-429971

PATIENT
  Sex: Female

DRUGS (3)
  1. DULOXETINE [Suspect]
     Active Substance: DULOXETINE
     Indication: Depression
     Route: 048
     Dates: start: 2017
  2. DULOXETINE [Suspect]
     Active Substance: DULOXETINE
     Indication: Fibromyalgia
  3. DULOXETINE [Suspect]
     Active Substance: DULOXETINE
     Indication: Dementia

REACTIONS (3)
  - Product use complaint [Unknown]
  - Off label use [Unknown]
  - Therapeutic response decreased [Unknown]
